FAERS Safety Report 6575321-7 (Version None)
Quarter: 2010Q1

REPORT INFORMATION
  Report Type: 
  Country: None (occurrence: None)
  Receive Date: 20100209
  Receipt Date: 20100127
  Transmission Date: 20100710
  Serious: Yes (Hospitalization)
  Sender: FDA-Public Use
  Company Number: CA-ROCHE-682730

PATIENT
  Sex: Female
  Weight: 46.1 kg

DRUGS (3)
  1. PEG-INTERFERON ALFA 2A (RO 25-8310) [Suspect]
     Indication: HEPATITIS C
     Dosage: DOSING AMT REPORTED AS 45 G/ML. FORM  REPORTED AS SOL. FOR INJECTION. STRENGHT REPORTED AS 180G/ML.
     Route: 058
     Dates: start: 20090518
  2. RIBAVIRIN [Suspect]
     Indication: HEPATITIS C
     Route: 048
     Dates: start: 20090518
  3. BI 201335 NA [Suspect]
     Indication: HEPATITIS C
     Route: 048
     Dates: start: 20090518, end: 20091029

REACTIONS (1)
  - HAEMATURIA [None]
